FAERS Safety Report 7379710-2 (Version None)
Quarter: 2011Q1

REPORT INFORMATION
  Report Type: 
  Country: None (occurrence: None)
  Receive Date: 20110329
  Receipt Date: 20110323
  Transmission Date: 20110831
  Serious: Yes (Death, Other)
  Sender: FDA-Public Use
  Company Number: JP-ABBOTT-10P-087-0662194-00

PATIENT
  Sex: Male
  Weight: 82 kg

DRUGS (7)
  1. HUMIRA [Suspect]
     Dates: start: 20100409, end: 20100722
  2. PYRIDOXAL PHOSPHATE HYDRATE [Concomitant]
     Indication: ANTIBIOTIC PROPHYLAXIS
     Route: 048
     Dates: start: 20100309, end: 20100802
  3. BETAMETHASONE BUTYRATE PROPIONATE [Concomitant]
     Indication: PSORIATIC ARTHROPATHY
     Dosage: QS
     Route: 061
     Dates: end: 20101012
  4. CLOBETASOL PROPIONATE [Concomitant]
     Indication: PSORIATIC ARTHROPATHY
     Dosage: QS
     Route: 061
     Dates: end: 20101012
  5. HUMIRA [Suspect]
     Indication: PSORIATIC ARTHROPATHY
     Dosage: 80MG LOADING DOSE
     Route: 058
     Dates: start: 20100325, end: 20100325
  6. LORATADINE [Concomitant]
     Indication: PRURITUS
     Route: 048
     Dates: start: 20091001, end: 20100809
  7. ISONIAZID [Concomitant]
     Indication: ANTIBIOTIC PROPHYLAXIS
     Route: 048
     Dates: start: 20100309, end: 20100802

REACTIONS (3)
  - GALLBLADDER CANCER [None]
  - METASTASES TO LIVER [None]
  - METASTASES TO LYMPH NODES [None]
